FAERS Safety Report 9284567 (Version 1)
Quarter: 2013Q2

REPORT INFORMATION
  Report Type: Spontaneous
  Country: IT (occurrence: IT)
  Receive Date: 20130511
  Receipt Date: 20130511
  Transmission Date: 20140414
  Serious: Yes (Hospitalization)
  Sender: FDA-Public Use
  Company Number: IT-TEVA-403596ISR

PATIENT
  Age: 63 Year
  Sex: Female

DRUGS (5)
  1. PACLITAXEL TEVA [Suspect]
     Indication: CHOLANGIOCARCINOMA
     Dosage: 120 MG CYCLCIAL
     Route: 041
     Dates: start: 20130424, end: 20130503
  2. HERCEPTIN [Concomitant]
  3. TRIMETON [Concomitant]
  4. SOLDESAM [Concomitant]
  5. RANIDIL [Concomitant]

REACTIONS (3)
  - Dyspnoea [Recovering/Resolving]
  - Flushing [Recovering/Resolving]
  - Renal pain [Recovering/Resolving]
